FAERS Safety Report 24279895 (Version 1)
Quarter: 2024Q3

REPORT INFORMATION
  Report Type: Spontaneous
  Country: IT (occurrence: IT)
  Receive Date: 20240904
  Receipt Date: 20240904
  Transmission Date: 20241017
  Serious: Yes (Life-Threatening, Hospitalization, Other)
  Sender: AUROBINDO
  Company Number: IT-MLMSERVICE-20240814-PI161781-00117-1

PATIENT
  Age: 6 Year
  Sex: Male

DRUGS (13)
  1. DOXORUBICIN [Suspect]
     Active Substance: DOXORUBICIN
     Indication: B precursor type acute leukaemia
     Dosage: UNK, 30 MG/MQ DAYS 8?15?22?29
     Route: 065
     Dates: start: 202210, end: 202210
  2. LEVETIRACETAM [Suspect]
     Active Substance: LEVETIRACETAM
     Indication: Status epilepticus
     Dosage: 20 MILLIGRAM/KILOGRAM, TWO TIMES A DAY
     Route: 065
  3. LEVETIRACETAM [Suspect]
     Active Substance: LEVETIRACETAM
     Dosage: 40 MILLIGRAM/KILOGRAM, TWO TIMES A DAY (INCREASED)
     Route: 065
  4. ASPARAGINASE [Suspect]
     Active Substance: ASPARAGINASE
     Indication: B precursor type acute leukaemia
     Dosage: UNK, 2500 UI/MQ DAY 8
     Route: 065
     Dates: start: 202210, end: 202210
  5. DEXAMETHASONE [Suspect]
     Active Substance: DEXAMETHASONE
     Indication: B precursor type acute leukaemia
     Dosage: UNK, 20 MG/MQ FROM DAY 1 TO DAY 21
     Route: 065
     Dates: start: 202210, end: 202210
  6. VINCRISTINE [Suspect]
     Active Substance: VINCRISTINE
     Indication: B precursor type acute leukaemia
     Dosage: UNK, 1.5 MG/MQ DAYS 8?15?22?29
     Route: 065
     Dates: start: 202210, end: 202210
  7. VALPROIC ACID [Suspect]
     Active Substance: VALPROIC ACID
     Indication: Status epilepticus
     Dosage: 30 MILLIGRAM/KILOGRAM
     Route: 040
  8. VALPROIC ACID [Suspect]
     Active Substance: VALPROIC ACID
     Dosage: 600 MILLIGRAM, ONCE A DAY
     Route: 042
  9. MIDAZOLAM [Suspect]
     Active Substance: MIDAZOLAM
     Indication: Status epilepticus
     Dosage: 0.2 MILLIGRAM/KILOGRAM PER HOUR
     Route: 065
  10. FENTANYL [Suspect]
     Active Substance: FENTANYL\FENTANYL CITRATE
     Indication: Status epilepticus
     Dosage: UNK
     Route: 065
  11. KETAMINE [Suspect]
     Active Substance: KETAMINE
     Indication: Status epilepticus
     Dosage: UNK
     Route: 065
  12. PHENOBARBITAL [Suspect]
     Active Substance: PHENOBARBITAL
     Indication: Status epilepticus
     Dosage: 150 MILLIGRAM, ONCE A DAY
     Route: 065
  13. PHENYTOIN [Suspect]
     Active Substance: PHENYTOIN
     Indication: Status epilepticus
     Dosage: 500 MILLIGRAM, ONCE A DAY
     Route: 065

REACTIONS (11)
  - Status epilepticus [Recovered/Resolved]
  - Posterior reversible encephalopathy syndrome [Recovered/Resolved]
  - Herpes zoster meningoencephalitis [Recovered/Resolved]
  - Infection reactivation [Recovered/Resolved]
  - Rash pustular [Recovered/Resolved]
  - Headache [Unknown]
  - Vomiting [Unknown]
  - Abdominal pain [Unknown]
  - Hyponatraemia [Unknown]
  - Epileptic encephalopathy [Unknown]
  - Drug ineffective [Unknown]

NARRATIVE: CASE EVENT DATE: 20221001
